FAERS Safety Report 12768585 (Version 1)
Quarter: 2016Q3

REPORT INFORMATION
  Report Type: Not Available
  Country: IE (occurrence: IE)
  Receive Date: 20160921
  Receipt Date: 20160921
  Transmission Date: 20161109
  Serious: Yes (Other)
  Sender: FDA-Public Use
  Company Number: IE-MUNDIPHARMA DS AND PHARMACOVIGILANCE-GBR-2016-0040549

PATIENT
  Age: 83 Year
  Sex: Male

DRUGS (14)
  1. BUPRENORPHINE HYDROCHLORIDE. [Suspect]
     Active Substance: BUPRENORPHINE HYDROCHLORIDE
     Indication: PAIN
     Dosage: 5 MCG, Q1H
     Route: 062
     Dates: start: 20160715, end: 20160808
  2. GERIVENT [Concomitant]
     Dosage: 2 PUFF, TID PRN
     Route: 055
  3. CHOLECALCIFEROL [Concomitant]
     Active Substance: CHOLECALCIFEROL
     Dosage: 1 BOTTLE ON FIRST OF MONTH
     Route: 048
  4. LOSEC MUPS HP [Concomitant]
     Dosage: 10 MG,DAILY
     Route: 048
  5. ULTIBRO BREEZHALER [Concomitant]
     Active Substance: GLYCOPYRRONIUM\INDACATEROL
     Dosage: 85/43 MCG ONE PUFF, DAILY
     Route: 055
  6. ALDACTONE [Concomitant]
     Active Substance: SPIRONOLACTONE
     Dosage: 12.5 MG, DAILY
     Route: 048
  7. CARDICOR [Concomitant]
     Active Substance: BISOPROLOL
     Dosage: 1.25 MG, DAILY
     Route: 048
  8. SOLPADEINE (ACETAMINOPHEN\CODEINE) [Concomitant]
     Active Substance: ACETAMINOPHEN\CODEINE PHOSPHATE
     Dosage: 2 CAPSL, Q6H
     Route: 048
  9. CLONFOLIC [Concomitant]
     Dosage: 400 MCG, 5X/WEEK
     Route: 048
  10. COMBODART [Concomitant]
     Active Substance: DUTASTERIDE\TAMSULOSIN
     Dosage: 1 CAPSL, DAILY
     Route: 048
  11. ELTROXIN [Concomitant]
     Active Substance: LEVOTHYROXINE
     Dosage: 50 MCG, DAILY
     Route: 048
  12. LEXAPRO [Concomitant]
     Active Substance: ESCITALOPRAM OXALATE
     Dosage: 10 MG ,DAILY
     Route: 048
  13. PARALIEF [Concomitant]
     Dosage: 500 MG, DAILY
  14. DECAPEPTYL                         /00486501/ [Concomitant]
     Active Substance: GONADORELIN
     Dosage: PRN
     Route: 042

REACTIONS (4)
  - Wheezing [Not Recovered/Not Resolved]
  - Cough [Not Recovered/Not Resolved]
  - Bronchiectasis [Unknown]
  - Pulmonary fibrosis [Unknown]

NARRATIVE: CASE EVENT DATE: 20160808
